FAERS Safety Report 11163527 (Version 2)
Quarter: 2015Q3

REPORT INFORMATION
  Report Type: Spontaneous
  Country: EG (occurrence: EG)
  Receive Date: 20150604
  Receipt Date: 20150806
  Transmission Date: 20151125
  Serious: Yes (Death, Other)
  Sender: FDA-Public Use
  Company Number: EG-AMGEN-EGYSP2015053501

PATIENT
  Age: 62 Year
  Sex: Female

DRUGS (4)
  1. CALCIUM D3 F [Concomitant]
     Dosage: UNK, DAILY
  2. METHOTREXATE (METHOTREXATE SODIUM) [Concomitant]
     Active Substance: METHOTREXATE SODIUM
     Dosage: 17.5 MG, WEEKLY TITRATED OVER 2 MONTHS
     Route: 030
  3. ENBREL [Suspect]
     Active Substance: ETANERCEPT
     Indication: RHEUMATOID ARTHRITIS
     Dosage: 50 MG, SINGLE
     Route: 058
     Dates: start: 20150521
  4. PREDNISOLONE. [Concomitant]
     Active Substance: PREDNISOLONE
     Dosage: 7.5 MG, DAILY

REACTIONS (1)
  - Sudden death [Fatal]
